FAERS Safety Report 6924825-3 (Version None)
Quarter: 2010Q3

REPORT INFORMATION
  Report Type: 
  Country: None (occurrence: None)
  Receive Date: 20100816
  Receipt Date: 20100810
  Transmission Date: 20110219
  Serious: Yes (Death)
  Sender: FDA-Public Use
  Company Number: US-ASTRAZENECA-2010SE37385

PATIENT
  Age: 57 Year
  Sex: Male

DRUGS (2)
  1. SEROQUEL [Suspect]
     Indication: BIPOLAR I DISORDER
     Route: 048
  2. COUMADIN [Concomitant]
     Indication: ATRIAL FIBRILLATION

REACTIONS (2)
  - COMPLETED SUICIDE [None]
  - DRUG DOSE OMISSION [None]
